FAERS Safety Report 12656560 (Version 1)
Quarter: 2016Q3

REPORT INFORMATION
  Report Type: Spontaneous
  Country: US (occurrence: US)
  Receive Date: 20160816
  Receipt Date: 20160816
  Transmission Date: 20161109
  Serious: No
  Sender: FDA-Public Use
  Company Number: US-PERRIGO-16US001793

PATIENT
  Age: 72 Year
  Sex: Male
  Weight: 68.27 kg

DRUGS (8)
  1. LORATADINE. [Suspect]
     Active Substance: LORATADINE
     Indication: EYE PRURITUS
     Dosage: 10 MG, QD
     Route: 048
     Dates: start: 20160216
  2. LORATADINE. [Suspect]
     Active Substance: LORATADINE
     Indication: HYPERSENSITIVITY
  3. LORATADINE. [Suspect]
     Active Substance: LORATADINE
     Indication: RHINORRHOEA
  4. LORATADINE. [Suspect]
     Active Substance: LORATADINE
     Indication: SNEEZING
  5. METAMORPHINE [Concomitant]
     Indication: GLUCOSE TOLERANCE IMPAIRED
     Dosage: UNK
     Route: 065
     Dates: start: 2014
  6. LISINOPRIL. [Concomitant]
     Active Substance: LISINOPRIL
     Indication: HYPERTENSION
     Dosage: UNK
     Route: 065
  7. ASPIRIN                            /00002701/ [Concomitant]
     Active Substance: ASPIRIN
     Indication: PROPHYLAXIS
     Dosage: UNK
     Route: 065
  8. LORATADINE. [Suspect]
     Active Substance: LORATADINE
     Indication: LACRIMATION INCREASED

REACTIONS (1)
  - Drug ineffective [Unknown]

NARRATIVE: CASE EVENT DATE: 20160216
